FAERS Safety Report 11188996 (Version 2)
Quarter: 2015Q3

REPORT INFORMATION
  Report Type: Report from Study
  Country: GB (occurrence: GB)
  Receive Date: 20150615
  Receipt Date: 20150827
  Transmission Date: 20151125
  Serious: Yes (Hospitalization)
  Sender: FDA-Public Use
  Company Number: GB-JNJFOC-20150605549

PATIENT
  Sex: Female

DRUGS (1)
  1. STELARA [Suspect]
     Active Substance: USTEKINUMAB
     Indication: PSORIASIS
     Dosage: 2 SYRINGES OF 90.0MG USTEKINUMAB
     Route: 058
     Dates: start: 20150129

REACTIONS (2)
  - Infection [Unknown]
  - Wound [Recovering/Resolving]
